FAERS Safety Report 25453319 (Version 1)
Quarter: 2025Q2

REPORT INFORMATION
  Report Type: Spontaneous
  Country: US (occurrence: US)
  Receive Date: 20250618
  Receipt Date: 20250618
  Transmission Date: 20250717
  Serious: No
  Sender: SANOFI AVENTIS
  Company Number: US-SA-2025SA171805

PATIENT
  Age: 62 Year
  Sex: Male

DRUGS (1)
  1. DUPIXENT [Suspect]
     Active Substance: DUPILUMAB
     Indication: Asthma
     Dosage: 300 MG, QOW
     Route: 058
     Dates: start: 20240205, end: 2025

REACTIONS (4)
  - Wheezing [Unknown]
  - Rebound effect [Unknown]
  - Incorrect dose administered [Unknown]
  - Productive cough [Unknown]

NARRATIVE: CASE EVENT DATE: 20240205
